FAERS Safety Report 9514294 (Version 2)
Quarter: 2013Q3

REPORT INFORMATION
  Report Type: Spontaneous
  Country: US (occurrence: US)
  Receive Date: 20130910
  Receipt Date: 20130925
  Transmission Date: 20140515
  Serious: Yes (Other)
  Sender: FDA-Public Use
  Company Number: US-009507513-1309USA002442

PATIENT
  Age: 53 Year
  Sex: Male

DRUGS (1)
  1. JANUVIA [Suspect]
     Indication: DIABETES MELLITUS
     Dosage: 100 MG, FREQUENCY: UNSPECIFIED; 1 STANDARD BOTTLE OF 30
     Route: 048
     Dates: start: 20130309, end: 20130828

REACTIONS (1)
  - Pancreatic carcinoma [Not Recovered/Not Resolved]
